FAERS Safety Report 15215798 (Version 1)
Quarter: 2018Q3

REPORT INFORMATION
  Report Type: Spontaneous
  Country: US (occurrence: US)
  Receive Date: 20180730
  Receipt Date: 20180730
  Transmission Date: 20181010
  Serious: No
  Sender: FDA-Public Use
  Company Number: US-JNJFOC-20180722284

PATIENT
  Age: 39 Year
  Sex: Male
  Weight: 89.81 kg

DRUGS (3)
  1. VISINE [Suspect]
     Active Substance: TETRAHYDROZOLINE HYDROCHLORIDE
     Indication: HYPERSENSITIVITY
     Route: 047
     Dates: start: 20180714, end: 20180714
  2. VISINE [Suspect]
     Active Substance: TETRAHYDROZOLINE HYDROCHLORIDE
     Indication: EYE IRRITATION
     Route: 047
     Dates: start: 20180714, end: 20180714
  3. NEUTROGENA MEN TRIPLE PROTECT FACE LOTION BROAD SPECTRUM SPF20 [Concomitant]
     Indication: PRODUCT USED FOR UNKNOWN INDICATION
     Dosage: BETWEEN A PEA AND DIME SIZE, ONCE
     Route: 061
     Dates: start: 20180714

REACTIONS (3)
  - Product label issue [Unknown]
  - Product use in unapproved indication [Unknown]
  - Therapeutic response unexpected [Unknown]

NARRATIVE: CASE EVENT DATE: 20180714
